FAERS Safety Report 10058593 (Version 1)
Quarter: 2014Q2

REPORT INFORMATION
  Report Type: Spontaneous
  Country: US (occurrence: US)
  Receive Date: 20140404
  Receipt Date: 20140404
  Transmission Date: 20141212
  Serious: No
  Sender: FDA-Public Use
  Company Number: US-MALLINCKRODT-T201301572

PATIENT
  Age: 25 Year
  Sex: Male

DRUGS (2)
  1. RESTORIL [Suspect]
     Indication: ANXIETY
     Dosage: 30 MG,EVERY OTHER NIGHT
     Dates: start: 20130213
  2. RESTORIL [Suspect]
     Indication: INSOMNIA

REACTIONS (5)
  - Insomnia [Unknown]
  - Feeling abnormal [Unknown]
  - Apathy [Unknown]
  - Anxiety [Unknown]
  - Mental impairment [None]
